FAERS Safety Report 25644214 (Version 1)
Quarter: 2025Q3

REPORT INFORMATION
  Report Type: Spontaneous
  Country: US (occurrence: None)
  Receive Date: 20250803
  Receipt Date: 20250803
  Transmission Date: 20251020
  Serious: Yes (Hospitalization)
  Sender: FDA-CTU
  Company Number: None

PATIENT
  Age: 29 Year
  Sex: Female
  Weight: 72 kg

DRUGS (7)
  1. INVEGA SUSTENNA [Suspect]
     Active Substance: PALIPERIDONE PALMITATE
     Indication: Product use issue
     Dates: start: 20240215, end: 20240226
  2. RISPERIDONE [Suspect]
     Active Substance: RISPERIDONE
     Indication: Schizophrenia
     Dates: end: 20240630
  3. LITHIUM [Concomitant]
     Active Substance: LITHIUM
  4. ABILIFY [Concomitant]
     Active Substance: ARIPIPRAZOLE
  5. LORAZEPAM [Concomitant]
     Active Substance: LORAZEPAM
  6. trazedone [Concomitant]
  7. Hair skin and nails [Concomitant]

REACTIONS (3)
  - Drug interaction [None]
  - Hallucination, auditory [None]
  - Infection parasitic [None]

NARRATIVE: CASE EVENT DATE: 20240215
